FAERS Safety Report 26197105 (Version 1)
Quarter: 2025Q4

REPORT INFORMATION
  Report Type: Spontaneous
  Country: US (occurrence: US)
  Receive Date: 20251224
  Receipt Date: 20251224
  Transmission Date: 20260118
  Serious: Yes (Death, Life-Threatening, Other)
  Sender: RANBAXY
  Company Number: US-SUN PHARMACEUTICAL INDUSTRIES LTD-2025R1-543325

PATIENT
  Age: 70 Year
  Sex: Female

DRUGS (2)
  1. CAPECITABINE [Suspect]
     Active Substance: CAPECITABINE
     Indication: Gallbladder adenocarcinoma
     Dosage: UNK
     Route: 065
  2. GEMCITABINE [Suspect]
     Active Substance: GEMCITABINE
     Indication: Gallbladder adenocarcinoma
     Dosage: UNK
     Route: 065

REACTIONS (4)
  - Stevens-Johnson syndrome [Fatal]
  - Haemorrhage intracranial [Fatal]
  - Ventricular fibrillation [Fatal]
  - Pancytopenia [Unknown]
